FAERS Safety Report 7861648-5 (Version None)
Quarter: 2011Q4

REPORT INFORMATION
  Report Type: 
  Country: None (occurrence: None)
  Receive Date: 20111027
  Receipt Date: 20111018
  Transmission Date: 20120403
  Serious: Yes (Other)
  Sender: FDA-Public Use
  Company Number: BR-NOVOPROD-337648

PATIENT

DRUGS (3)
  1. VICTOZA [Suspect]
     Dosage: 1.2 MG, QD
     Route: 058
  2. VICTOZA [Suspect]
     Indication: WEIGHT CONTROL
     Dosage: 0.6 MG, QD
     Route: 058
     Dates: start: 20110920
  3. YAZ                                /01502501/ [Concomitant]
     Indication: CONTRACEPTION
     Dosage: 1 TAB, QD
     Route: 048
     Dates: start: 20071018

REACTIONS (1)
  - HAEMATOCHEZIA [None]
